FAERS Safety Report 24908360 (Version 3)
Quarter: 2025Q2

REPORT INFORMATION
  Report Type: Report from Study
  Country: US (occurrence: US)
  Receive Date: 20250131
  Receipt Date: 20250502
  Transmission Date: 20250716
  Serious: Yes (Death)
  Sender: AMNEAL
  Company Number: US-AMNEAL PHARMACEUTICALS-2024-AMRX-04504

PATIENT
  Age: 44 Year
  Sex: Female

DRUGS (4)
  1. ALYMSYS [Suspect]
     Active Substance: BEVACIZUMAB-MALY
     Indication: Rectosigmoid cancer
     Route: 042
  2. ALYMSYS [Suspect]
     Active Substance: BEVACIZUMAB-MALY
     Route: 042
     Dates: start: 20241210
  3. ALYMSYS [Suspect]
     Active Substance: BEVACIZUMAB-MALY
     Route: 042
  4. ALYMSYS [Suspect]
     Active Substance: BEVACIZUMAB-MALY
     Route: 042
     Dates: start: 20250122

REACTIONS (4)
  - Death [Fatal]
  - Weight increased [Unknown]
  - Product dose omission issue [Unknown]
  - Product distribution issue [Unknown]

NARRATIVE: CASE EVENT DATE: 20250416
